FAERS Safety Report 7990078-0 (Version None)
Quarter: 2011Q4

REPORT INFORMATION
  Report Type: 
  Country: None (occurrence: None)
  Receive Date: 20111219
  Receipt Date: 20110930
  Transmission Date: 20120403
  Serious: No
  Sender: FDA-Public Use
  Company Number: US-ASTRAZENECA-2011SE58811

PATIENT
  Sex: Female

DRUGS (7)
  1. BAYCOL [Suspect]
  2. CRESTOR [Suspect]
     Route: 048
  3. LOVASTATIN [Suspect]
  4. LISINOPRIL [Concomitant]
  5. UNSPECIFIED ANTIHISTAMINE [Concomitant]
  6. SYNTHROID [Concomitant]
  7. LIPITOR [Suspect]

REACTIONS (3)
  - LISTLESS [None]
  - FATIGUE [None]
  - CONFUSIONAL STATE [None]
